FAERS Safety Report 23443834 (Version 1)
Quarter: 2024Q1

REPORT INFORMATION
  Report Type: Report from Study
  Country: US (occurrence: US)
  Receive Date: 20240125
  Receipt Date: 20240125
  Transmission Date: 20240409
  Serious: Yes (Hospitalization, Other)
  Sender: FDA-Public Use
  Company Number: US-PFIZER INC-PV202400010132

PATIENT
  Age: 74 Year
  Sex: Female

DRUGS (1)
  1. BRAFTOVI [Suspect]
     Active Substance: ENCORAFENIB
     Dosage: UNK

REACTIONS (7)
  - Muscular weakness [Unknown]
  - Fall [Unknown]
  - Dehydration [Unknown]
  - Thrombosis [Unknown]
  - Fatigue [Unknown]
  - Dizziness [Unknown]
  - Blood pressure decreased [Unknown]
